FAERS Safety Report 25985942 (Version 2)
Quarter: 2025Q4

REPORT INFORMATION
  Report Type: Spontaneous
  Country: GB (occurrence: GB)
  Receive Date: 20251031
  Receipt Date: 20251107
  Transmission Date: 20260118
  Serious: Yes (Other)
  Sender: ELI LILLY AND COMPANY
  Company Number: None

PATIENT

DRUGS (1)
  1. MOUNJARO [Suspect]
     Active Substance: TIRZEPATIDE
     Indication: Product used for unknown indication
     Dosage: UNK UNK, UNKNOWN
     Route: 065

REACTIONS (9)
  - Depressed mood [Unknown]
  - Headache [Unknown]
  - Dehydration [Unknown]
  - Fatigue [Unknown]
  - Diarrhoea [Unknown]
  - Abdominal pain [Unknown]
  - Pyrexia [Unknown]
  - Feeling hot [Unknown]
  - Chills [Unknown]
